FAERS Safety Report 24410193 (Version 1)
Quarter: 2024Q4

REPORT INFORMATION
  Report Type: Spontaneous
  Country: US (occurrence: US)
  Receive Date: 20241008
  Receipt Date: 20241008
  Transmission Date: 20250114
  Serious: No
  Sender: JOHNSON AND JOHNSON
  Company Number: US-JNJFOC-20241019073

PATIENT
  Age: 66 Year
  Sex: Male
  Weight: 133.6 kg

DRUGS (3)
  1. TYLENOL [Suspect]
     Active Substance: ACETAMINOPHEN
     Indication: Arthralgia
     Dosage: TAKES TYLENOL EVERY OTHER DAY
     Route: 065
     Dates: start: 202409
  2. TYLENOL [Suspect]
     Active Substance: ACETAMINOPHEN
     Indication: Pain in extremity
  3. UPTRAVI [Concomitant]
     Active Substance: SELEXIPAG
     Indication: Pulmonary arterial hypertension
     Dosage: 800 MCG IN MORNING AND 1600 MCG IN EVENING
     Route: 048

REACTIONS (1)
  - Inappropriate schedule of product administration [Unknown]

NARRATIVE: CASE EVENT DATE: 20240901
